FAERS Safety Report 4467933-1 (Version None)
Quarter: 2004Q4

REPORT INFORMATION
  Report Type: 
  Country: None (occurrence: None)
  Receive Date: 20041004
  Receipt Date: 20040921
  Transmission Date: 20050328
  Serious: Yes (Hospitalization)
  Sender: FDA-Public Use
  Company Number: STA-AE-04-MTX-437

PATIENT
  Age: 54 Year
  Sex: Female

DRUGS (15)
  1. METHOTREXATE [Suspect]
     Indication: RHEUMATOID ARTHRITIS
     Dosage: 7.5 MG 1X PER 1 WK, ORAL
     Route: 048
     Dates: start: 20020913, end: 20040811
  2. ACETAMINOPHEN [Suspect]
     Dosage: 4 G DAILY, ORAL
     Route: 048
     Dates: end: 20040810
  3. NIMESULIDE (NIMESULIDE) [Suspect]
     Dosage: 100 MG 2X PER 1 DAY, ORAL
     Route: 048
     Dates: end: 20040810
  4. REMICADE [Suspect]
     Indication: RHEUMATOID ARTHRITIS
     Dosage: INTRAVENOUS
     Route: 042
     Dates: start: 20021012, end: 20040729
  5. CORTANCYL (PREDNISONE) [Concomitant]
  6. TRAMADOL HCL [Concomitant]
  7. OMEPRAZOLE [Concomitant]
  8. PRAXILENE (NAFTIDROFURYL OXALATE) [Concomitant]
  9. TORENTAL (PENTOXIFYLLINE) [Concomitant]
  10. PERSANTINE-75 [Concomitant]
  11. GLICLAZIDE (GLICLAZIDE) [Concomitant]
  12. INDAPAMIDE [Concomitant]
  13. ZESTORETIC [Concomitant]
  14. ESTRADIOL [Concomitant]
  15. ACTONEL [Concomitant]

REACTIONS (5)
  - ALANINE AMINOTRANSFERASE INCREASED [None]
  - ASPARTATE AMINOTRANSFERASE INCREASED [None]
  - CONDITION AGGRAVATED [None]
  - GAMMA-GLUTAMYLTRANSFERASE INCREASED [None]
  - HYPERTRIGLYCERIDAEMIA [None]
